FAERS Safety Report 4552463-9 (Version None)
Quarter: 2005Q1

REPORT INFORMATION
  Report Type: 
  Country: None (occurrence: None)
  Receive Date: 20050114
  Receipt Date: 20040628
  Transmission Date: 20050727
  Serious: Yes (Other)
  Sender: FDA-Public Use
  Company Number: US-BRISTOL-MYERS SQUIBB COMPANY-12626750

PATIENT
  Age: 36 Year
  Sex: Female
  Weight: 57 kg

DRUGS (9)
  1. CISPLATIN [Suspect]
     Indication: VULVAL CANCER
     Dosage: 1ST DOSE: 15-JUN @64 MG
     Route: 042
     Dates: start: 20040622, end: 20040622
  2. RADIATION THERAPY [Concomitant]
  3. DEXTROSE 5% [Concomitant]
     Indication: PREMEDICATION
     Dates: start: 20040622, end: 20040622
  4. ZOFRAN [Concomitant]
     Indication: PREMEDICATION
     Route: 042
     Dates: start: 20040622, end: 20040622
  5. DECADRON [Concomitant]
     Indication: PREMEDICATION
     Route: 042
     Dates: start: 20040622, end: 20040622
  6. MULTIVITAMIN [Concomitant]
  7. CALCIUM GLUCONATE [Concomitant]
  8. IRON (FERROUS SULFATE) [Concomitant]
  9. DARVOCET-N 100 [Concomitant]

REACTIONS (1)
  - TYPE IV HYPERSENSITIVITY REACTION [None]
